FAERS Safety Report 15196884 (Version 2)
Quarter: 2018Q3

REPORT INFORMATION
  Report Type: Spontaneous
  Country: US (occurrence: US)
  Receive Date: 20180725
  Receipt Date: 20180907
  Transmission Date: 20181010
  Serious: Yes (Death, Hospitalization)
  Sender: FDA-Public Use
  Company Number: US-ALLERGAN-1836511US

PATIENT
  Age: 33 Year
  Sex: Female
  Weight: 70.3 kg

DRUGS (1)
  1. LILETTA [Suspect]
     Active Substance: LEVONORGESTREL
     Indication: CONTRACEPTION
     Dosage: 52 MG
     Route: 015
     Dates: start: 20180710, end: 20180714

REACTIONS (16)
  - Hypokalaemia [Fatal]
  - Feeling abnormal [Unknown]
  - Toxic shock syndrome [Fatal]
  - Acute kidney injury [Fatal]
  - Sepsis [Fatal]
  - Pain [Unknown]
  - Pyrexia [Unknown]
  - Diarrhoea [Unknown]
  - Vomiting [Unknown]
  - Cardiac arrest [Fatal]
  - Abdominal pain [Unknown]
  - Condition aggravated [Fatal]
  - Peritonitis [Fatal]
  - Uterine spasm [Unknown]
  - Nausea [Unknown]
  - Infection [Fatal]

NARRATIVE: CASE EVENT DATE: 20180712
